FAERS Safety Report 9445785 (Version 7)
Quarter: 2014Q2

REPORT INFORMATION
  Report Type: Spontaneous
  Country: US (occurrence: US)
  Receive Date: 20130807
  Receipt Date: 20140417
  Transmission Date: 20141212
  Serious: Yes (Death)
  Sender: FDA-Public Use
  Company Number: US-BIOMARINAP-US-2013-100949

PATIENT
  Sex: Male
  Weight: 98 kg

DRUGS (6)
  1. KUVAN [Suspect]
     Indication: PHENYLKETONURIA
     Dosage: 2200 MG, QD
     Route: 048
     Dates: start: 20121116, end: 20130625
  2. KUVAN [Suspect]
     Dosage: 2000 MG, QD
     Route: 048
     Dates: start: 201301, end: 20130625
  3. KUVAN [Suspect]
     Dosage: 20 MG/KG, UNK
     Route: 048
     Dates: start: 20121026
  4. FISH OIL [Concomitant]
     Indication: PRODUCT USED FOR UNKNOWN INDICATION
  5. VITAMIN D3 [Concomitant]
     Indication: PRODUCT USED FOR UNKNOWN INDICATION
  6. NIACIN [Concomitant]
     Indication: PRODUCT USED FOR UNKNOWN INDICATION

REACTIONS (6)
  - Metastatic gastric cancer [Fatal]
  - Gastric cancer [Not Recovered/Not Resolved]
  - Mass [Unknown]
  - Gastric ulcer [Unknown]
  - Dyspepsia [Recovering/Resolving]
  - Eructation [Unknown]
